FAERS Safety Report 4899554-0 (Version None)
Quarter: 2006Q1

REPORT INFORMATION
  Report Type: 
  Country: None (occurrence: None)
  Receive Date: 20060130
  Receipt Date: 20060116
  Transmission Date: 20060701
  Serious: Yes (Other)
  Sender: FDA-Public Use
  Company Number: 2006008675

PATIENT
  Age: 61 Year
  Sex: Male

DRUGS (10)
  1. VIAGRA [Suspect]
     Indication: ERECTILE DYSFUNCTION
     Dosage: 25 MG (25 MG, 1 AS NECESSARY), ORAL
     Route: 048
  2. METHOTREXATE [Suspect]
     Indication: ILL-DEFINED DISORDER
     Dosage: ORAL
     Route: 048
     Dates: end: 20051109
  3. WARFARIN SODIUM [Concomitant]
  4. PREDNISOLONE [Concomitant]
  5. CORTISONE ACETATE [Concomitant]
  6. OPTINATE SEPTIMUM (RISEDRONATE SODIUM) [Concomitant]
  7. OMEGA 3 (FISH OIL) [Concomitant]
  8. MAGNESIUM (MAGNESIUM) [Concomitant]
  9. IRON (IRON) [Concomitant]
  10. VITAMIN C (VITAMIN C) [Concomitant]

REACTIONS (3)
  - BLINDNESS UNILATERAL [None]
  - GASTRIC DISORDER [None]
  - MALAISE [None]
